FAERS Safety Report 7743084-5 (Version None)
Quarter: 2011Q3

REPORT INFORMATION
  Report Type: 
  Country: None (occurrence: None)
  Receive Date: 20110901
  Receipt Date: 20110826
  Transmission Date: 20111222
  Serious: Yes (Death)
  Sender: FDA-Public Use
  Company Number: DSA_47485_2011

PATIENT
  Age: 89 Year
  Sex: Female

DRUGS (1)
  1. XENAZINE [Suspect]
     Indication: DYSKINESIA
     Dosage: 25 MG QAM, 12.5 MG AT NOON, 25 MG QPM ORAL
     Route: 048
     Dates: start: 20100116, end: 20110821

REACTIONS (1)
  - DEATH [None]
